FAERS Safety Report 13741000 (Version 1)
Quarter: 2017Q3

REPORT INFORMATION
  Report Type: Report from Study
  Country: US (occurrence: US)
  Receive Date: 20170711
  Receipt Date: 20170711
  Transmission Date: 20171127
  Serious: Yes (Other)
  Sender: FDA-Public Use
  Company Number: US-PFIZER INC-2017296289

PATIENT
  Age: 79 Year
  Sex: Female

DRUGS (2)
  1. IBRANCE [Suspect]
     Active Substance: PALBOCICLIB
     Dosage: 125 MG, CYCLIC(DAILY/3 WEEKS ON, 1 WEEK OFF)
     Route: 048
     Dates: start: 20170618
  2. IBRANCE [Suspect]
     Active Substance: PALBOCICLIB
     Indication: BREAST CANCER
     Dosage: 125 MG, CYCLIC(DAILY/3 WEEKS ON, 1 WEEK OFF)
     Route: 048
     Dates: start: 201701, end: 201703

REACTIONS (6)
  - Dyspnoea [Unknown]
  - Balance disorder [Unknown]
  - Fatigue [Unknown]
  - Loss of consciousness [Unknown]
  - Blood creatinine increased [Unknown]
  - Somnolence [Unknown]
